FAERS Safety Report 17763920 (Version 1)
Quarter: 2020Q2

REPORT INFORMATION
  Report Type: Spontaneous
  Country: CA (occurrence: CA)
  Receive Date: 20200510
  Receipt Date: 20200510
  Transmission Date: 20200714
  Serious: Yes (Hospitalization)
  Sender: FDA-Public Use
  Company Number: CA-ROCHE-2594955

PATIENT
  Age: 51 Year
  Sex: Male

DRUGS (21)
  1. SANDOSTATIN [Suspect]
     Active Substance: OCTREOTIDE ACETATE
     Route: 030
  2. CANNABIS SATIVA OIL [Concomitant]
     Active Substance: CANNABIS SATIVA SUBSP. INDICA TOP
  3. SANDOSTATIN [Suspect]
     Active Substance: OCTREOTIDE ACETATE
     Indication: PRODUCT USED FOR UNKNOWN INDICATION
     Route: 030
  4. VENTOLIN [Concomitant]
     Active Substance: ALBUTEROL SULFATE
  5. MORPHINE [Suspect]
     Active Substance: MORPHINE
     Indication: PRODUCT USED FOR UNKNOWN INDICATION
     Route: 065
  6. SANDOSTATIN [Suspect]
     Active Substance: OCTREOTIDE ACETATE
     Route: 030
  7. SANDOSTATIN [Suspect]
     Active Substance: OCTREOTIDE ACETATE
     Route: 030
  8. AFINITOR [Concomitant]
     Active Substance: EVEROLIMUS
     Route: 048
  9. SANDOSTATIN [Suspect]
     Active Substance: OCTREOTIDE ACETATE
     Route: 030
  10. SANDOSTATIN [Suspect]
     Active Substance: OCTREOTIDE ACETATE
     Route: 058
  11. ACETYLSALICYLIC ACID [Concomitant]
     Active Substance: ASPIRIN
  12. BENADRYL [Concomitant]
     Active Substance: DIPHENHYDRAMINE HYDROCHLORIDE
  13. RITUXAN [Suspect]
     Active Substance: RITUXIMAB
     Indication: PRODUCT USED FOR UNKNOWN INDICATION
     Route: 065
  14. SANDOSTATIN [Suspect]
     Active Substance: OCTREOTIDE ACETATE
     Route: 030
  15. SANDOSTATIN [Suspect]
     Active Substance: OCTREOTIDE ACETATE
     Route: 058
  16. ATIVAN [Concomitant]
     Active Substance: LORAZEPAM
  17. TYLENOL [Concomitant]
     Active Substance: ACETAMINOPHEN
  18. SANDOSTATIN [Suspect]
     Active Substance: OCTREOTIDE ACETATE
     Route: 030
  19. CALCIUM [Concomitant]
     Active Substance: CALCIUM
  20. D-ALPHA TOCOPHEROL [Concomitant]
     Active Substance: .ALPHA.-TOCOPHEROL, D-
  21. MAXERAN [Concomitant]
     Active Substance: METOCLOPRAMIDE HYDROCHLORIDE

REACTIONS (40)
  - Abdominal pain [Not Recovered/Not Resolved]
  - Blood pressure increased [Not Recovered/Not Resolved]
  - Flushing [Not Recovered/Not Resolved]
  - Inappropriate schedule of product administration [Unknown]
  - Influenza like illness [Not Recovered/Not Resolved]
  - Overdose [Unknown]
  - Pain in extremity [Not Recovered/Not Resolved]
  - Blood glucose increased [Not Recovered/Not Resolved]
  - Influenza [Not Recovered/Not Resolved]
  - Whipple^s disease [Not Recovered/Not Resolved]
  - Chest discomfort [Not Recovered/Not Resolved]
  - Chills [Not Recovered/Not Resolved]
  - Dizziness [Not Recovered/Not Resolved]
  - Tremor [Not Recovered/Not Resolved]
  - Fatigue [Not Recovered/Not Resolved]
  - Headache [Not Recovered/Not Resolved]
  - Immunoglobulins decreased [Not Recovered/Not Resolved]
  - Tinnitus [Not Recovered/Not Resolved]
  - Weight decreased [Not Recovered/Not Resolved]
  - Myalgia [Not Recovered/Not Resolved]
  - Pain [Not Recovered/Not Resolved]
  - Secretion discharge [Not Recovered/Not Resolved]
  - Carcinoid crisis [Not Recovered/Not Resolved]
  - Erythema [Not Recovered/Not Resolved]
  - Nasopharyngitis [Not Recovered/Not Resolved]
  - Oropharyngeal pain [Not Recovered/Not Resolved]
  - Decreased appetite [Not Recovered/Not Resolved]
  - Hot flush [Not Recovered/Not Resolved]
  - Malaise [Not Recovered/Not Resolved]
  - Nausea [Not Recovered/Not Resolved]
  - Rhinorrhoea [Not Recovered/Not Resolved]
  - Toxicity to various agents [Not Recovered/Not Resolved]
  - Bone pain [Not Recovered/Not Resolved]
  - Cough [Not Recovered/Not Resolved]
  - Diarrhoea [Not Recovered/Not Resolved]
  - Dry skin [Not Recovered/Not Resolved]
  - Productive cough [Not Recovered/Not Resolved]
  - Rash [Not Recovered/Not Resolved]
  - Tooth infection [Not Recovered/Not Resolved]
  - Viral infection [Not Recovered/Not Resolved]
